FAERS Safety Report 10259190 (Version 2)
Quarter: 2014Q2

REPORT INFORMATION
  Report Type: Spontaneous
  Country: US (occurrence: US)
  Receive Date: 20140625
  Receipt Date: 20140625
  Transmission Date: 20141212
  Serious: No
  Sender: FDA-Public Use
  Company Number: US-ASTELLAS-2014US001042

PATIENT
  Sex: Female

DRUGS (1)
  1. VESICARE [Suspect]
     Indication: URGE INCONTINENCE
     Route: 065
     Dates: start: 20140112

REACTIONS (2)
  - Drug ineffective [Unknown]
  - Nausea [Unknown]
